FAERS Safety Report 6359470-4 (Version None)
Quarter: 2009Q3

REPORT INFORMATION
  Report Type: 
  Country: None (occurrence: None)
  Receive Date: 20090917
  Receipt Date: 20090907
  Transmission Date: 20100115
  Serious: Yes (Other)
  Sender: FDA-Public Use
  Company Number: JP-TEVA-209303ISR

PATIENT
  Age: 74 Year
  Sex: Female

DRUGS (3)
  1. CISPLATIN [Suspect]
     Indication: PERIPHERAL T-CELL LYMPHOMA UNSPECIFIED
     Route: 041
     Dates: start: 20070714
  2. CYTARABINE [Concomitant]
     Dosage: 2G/M2
     Route: 042
     Dates: start: 20070614
  3. METHYLPREDNISOLONE [Concomitant]
     Route: 042
     Dates: start: 20070614

REACTIONS (2)
  - INAPPROPRIATE ANTIDIURETIC HORMONE SECRETION [None]
  - TUMOUR LYSIS SYNDROME [None]
